FAERS Safety Report 9414931 (Version 3)
Quarter: 2013Q3

REPORT INFORMATION
  Report Type: Spontaneous
  Country: US (occurrence: None)
  Receive Date: 20130718
  Receipt Date: 20130827
  Transmission Date: 20140515
  Serious: Yes (Hospitalization, Other)
  Sender: FDA-Public Use
  Company Number: JPI-P-033581

PATIENT
  Age: 34 Year
  Sex: Female

DRUGS (15)
  1. XYREM [Suspect]
     Indication: CATAPLEXY
     Dosage: 4.5 GM (2.25 GM,2 IN 1 D)
     Route: 048
     Dates: start: 20041026
  2. XYREM [Suspect]
     Indication: SOMNOLENCE
     Dosage: 4.5 GM (2.25 GM,2 IN 1 D)
     Route: 048
     Dates: start: 20041026
  3. ARMODAFINIL [Concomitant]
  4. METHYLPHENIDATE HYDROCHLORIDE (20 MILLIGRAM) [Concomitant]
  5. OMEPRAZOLE (40 MILLIGRAM) [Concomitant]
  6. DEPAKOTE [Concomitant]
  7. GABAPENTIN (600 MILLIGRAM) [Concomitant]
  8. TIZANIDINE (4 MILLIGRAM) [Concomitant]
  9. TRAZODONE (300 MILLIGRAM) [Concomitant]
  10. LIDOCAINE [Concomitant]
  11. ALPRAZOLAM (0.25 MILLIGRAM) [Concomitant]
  12. CLONAZEPAM [Concomitant]
  13. LORAZEPAM [Concomitant]
  14. TOPIRAMATE [Concomitant]
  15. VILAZODONE [Concomitant]

REACTIONS (5)
  - Loss of consciousness [None]
  - Fall [None]
  - Head injury [None]
  - Loss of consciousness [None]
  - Drug interaction [None]
